FAERS Safety Report 16955975 (Version 2)
Quarter: 2019Q4

REPORT INFORMATION
  Report Type: Spontaneous
  Country: ES (occurrence: ES)
  Receive Date: 20191024
  Receipt Date: 20191114
  Transmission Date: 20200122
  Serious: Yes (Other)
  Sender: FDA-Public Use
  Company Number: NVSC2019ES011992

PATIENT
  Age: 58 Year
  Sex: Female

DRUGS (5)
  1. OXALIPLATIN. [Suspect]
     Active Substance: OXALIPLATIN
     Indication: NON-SMALL CELL LUNG CANCER
     Dosage: 100 MG/M2, Q2W, TOTAL DOSE OF 142 MG
     Route: 041
     Dates: start: 20171013, end: 20171220
  2. NIVOLUMAB [Concomitant]
     Active Substance: NIVOLUMAB
     Indication: NON-SMALL CELL LUNG CANCER
     Dosage: UNK
     Route: 065
  3. 5-FLUOROURACIL [Concomitant]
     Active Substance: FLUOROURACIL
     Indication: NON-SMALL CELL LUNG CANCER
     Dosage: 400 MG/M2, Q2W
     Route: 042
     Dates: start: 201710, end: 201712
  4. LEUCOVORIN. [Concomitant]
     Active Substance: LEUCOVORIN
     Indication: NON-SMALL CELL LUNG CANCER
     Dosage: 400 MG/M2, Q2W, TOTAL DOSE 570MG
     Route: 062
  5. 5-FLUOROURACIL [Concomitant]
     Active Substance: FLUOROURACIL
     Dosage: 1200 MG/M2, QD (3600MG/46 HOURS)
     Route: 041
     Dates: start: 201710, end: 201712

REACTIONS (4)
  - Thrombocytopenia [Recovered/Resolved]
  - Therapy partial responder [Unknown]
  - Neutropenia [Recovered/Resolved]
  - Product use in unapproved indication [Unknown]

NARRATIVE: CASE EVENT DATE: 20171108
